FAERS Safety Report 14411603 (Version 1)
Quarter: 2018Q1

REPORT INFORMATION
  Report Type: Report from Study
  Country: US (occurrence: US)
  Receive Date: 20180119
  Receipt Date: 20180119
  Transmission Date: 20180509
  Serious: Yes (Death)
  Sender: FDA-Public Use
  Company Number: US-ASTRAZENECA-2017SF13199

PATIENT
  Age: 78 Year
  Sex: Female

DRUGS (17)
  1. IRESSA [Suspect]
     Active Substance: GEFITINIB
     Indication: LUNG CARCINOMA CELL TYPE UNSPECIFIED STAGE 0
     Route: 048
     Dates: start: 20171011
  2. DEXAMETHASONE. [Concomitant]
     Active Substance: DEXAMETHASONE
  3. REMERON [Concomitant]
     Active Substance: MIRTAZAPINE
  4. ELIQUIS [Concomitant]
     Active Substance: APIXABAN
  5. COZAAR [Concomitant]
     Active Substance: LOSARTAN POTASSIUM
  6. LOPRESSOR [Concomitant]
     Active Substance: METOPROLOL TARTRATE
  7. PROMETHAZINE [Concomitant]
     Active Substance: PROMETHAZINE\PROMETHAZINE HYDROCHLORIDE
  8. VALIUM [Concomitant]
     Active Substance: DIAZEPAM
  9. ZOFRAN [Concomitant]
     Active Substance: ONDANSETRON HYDROCHLORIDE
  10. ASPIRIN. [Concomitant]
     Active Substance: ASPIRIN
  11. IRON [Concomitant]
     Active Substance: IRON
  12. ATIVAN [Concomitant]
     Active Substance: LORAZEPAM
  13. CALCIUM+D [Concomitant]
     Active Substance: CALCIUM\VITAMIN D
  14. FOLIC ACID. [Concomitant]
     Active Substance: FOLIC ACID
  15. OXYCODONE [Concomitant]
     Active Substance: OXYCODONE
  16. CEPHALEXIN. [Concomitant]
     Active Substance: CEPHALEXIN
  17. PHENAZOPYRIDINE. [Concomitant]
     Active Substance: PHENAZOPYRIDINE

REACTIONS (2)
  - Rash pustular [Not Recovered/Not Resolved]
  - Death [Fatal]
